FAERS Safety Report 7268448-8 (Version None)
Quarter: 2011Q1

REPORT INFORMATION
  Report Type: 
  Country: None (occurrence: None)
  Receive Date: 20110201
  Receipt Date: 20110124
  Transmission Date: 20110831
  Serious: Yes (Death, Other)
  Sender: FDA-Public Use
  Company Number: GB-GENZYME-FABR-1001779

PATIENT
  Age: 56 Year
  Sex: Male

DRUGS (1)
  1. FABRAZYME [Suspect]
     Indication: FABRY'S DISEASE
     Dosage: 1.0 MG/KG, Q2W
     Route: 042
     Dates: start: 20020101, end: 20040101

REACTIONS (2)
  - SUDDEN DEATH [None]
  - LEFT VENTRICULAR DYSFUNCTION [None]
